FAERS Safety Report 25507317 (Version 1)
Quarter: 2025Q3

REPORT INFORMATION
  Report Type: Spontaneous
  Country: US (occurrence: US)
  Receive Date: 20250703
  Receipt Date: 20250703
  Transmission Date: 20251021
  Serious: No
  Sender: ABBVIE
  Company Number: US-ABBVIE-6354118

PATIENT
  Sex: Female

DRUGS (2)
  1. LILETTA [Suspect]
     Active Substance: LEVONORGESTREL
     Indication: Product used for unknown indication
     Route: 015
     Dates: start: 20250530
  2. LILETTA [Suspect]
     Active Substance: LEVONORGESTREL
     Route: 015
     Dates: start: 20250630

REACTIONS (3)
  - Maternal exposure during pregnancy [Unknown]
  - Pregnancy on contraceptive [Unknown]
  - Drug ineffective [Unknown]
